FAERS Safety Report 9221458 (Version 3)
Quarter: 2013Q2

REPORT INFORMATION
  Report Type: Spontaneous
  Country: US (occurrence: US)
  Receive Date: 20130410
  Receipt Date: 20130515
  Transmission Date: 20140414
  Serious: No
  Sender: FDA-Public Use
  Company Number: US-009507513-1304USA003607

PATIENT
  Age: 58 Year
  Sex: Female
  Weight: 80.27 kg

DRUGS (15)
  1. VICTRELIS [Suspect]
     Dosage: TAKE 4 CAPSULES (800MG TOTAL) BY MOUTH THREE TIMES A DAY (WITH MEALS)
     Route: 048
  2. REBETOL [Suspect]
  3. PEGASYS [Suspect]
     Dosage: 180MCG/M
  4. ASTELIN (AZELASTINE HYDROCHLORIDE) [Concomitant]
  5. SOMA [Concomitant]
  6. SERTRALINE HYDROCHLORIDE [Concomitant]
  7. AMLODIPINE [Concomitant]
  8. SYNTHROID [Concomitant]
  9. GABAPENTIN [Concomitant]
  10. LISINOPRIL [Concomitant]
  11. OMEPRAZOLE [Concomitant]
  12. PROPRANOLOL HYDROCHLORIDE [Concomitant]
  13. CLARITIN [Concomitant]
  14. ZOLPIDEM TARTRATE [Concomitant]
  15. MUCINEX [Concomitant]

REACTIONS (9)
  - Dyspnoea [Unknown]
  - Anaemia [Unknown]
  - Cellulitis [Unknown]
  - Hypokalaemia [Unknown]
  - Retinal exudates [Unknown]
  - Dry mouth [Unknown]
  - Saliva altered [Unknown]
  - Dysgeusia [Unknown]
  - Polydipsia [Unknown]
